FAERS Safety Report 4603246-2 (Version None)
Quarter: 2005Q1

REPORT INFORMATION
  Report Type: 
  Country: None (occurrence: None)
  Receive Date: 20050308
  Receipt Date: 20050221
  Transmission Date: 20050727
  Serious: No
  Sender: FDA-Public Use
  Company Number: 2005AC00379

PATIENT
  Age: 5 Year
  Sex: Male

DRUGS (12)
  1. MEROPENEM [Suspect]
     Indication: COMPLICATIONS OF BONE MARROW TRANSPLANT
  2. MEROPENEM [Suspect]
     Indication: INFECTION
  3. CYCLOSPORINE [Suspect]
     Indication: COMPLICATIONS OF BONE MARROW TRANSPLANT
  4. CYCLOSPORINE [Suspect]
     Indication: INFECTION
  5. NULSUFAN [Suspect]
     Indication: COMPLICATIONS OF BONE MARROW TRANSPLANT
  6. NULSUFAN [Suspect]
     Indication: POSTOPERATIVE INFECTION
  7. CYCLOPHOSPHAMIDE [Suspect]
     Indication: COMPLICATIONS OF BONE MARROW TRANSPLANT
  8. CYCLOPHOSPHAMIDE [Suspect]
     Indication: POSTOPERATIVE INFECTION
  9. TACROLIUMS [Suspect]
     Indication: COMPLICATIONS OF BONE MARROW TRANSPLANT
  10. TACROLIUMS [Suspect]
     Indication: POSTOPERATIVE INFECTION
  11. CEFIPIME [Suspect]
     Indication: COMPLICATIONS OF BONE MARROW TRANSPLANT
  12. CEFIPIME [Suspect]
     Indication: POSTOPERATIVE INFECTION

REACTIONS (1)
  - REVERSIBLE POSTERIOR LEUKOENCEPHALOPATHY SYNDROME [None]
